FAERS Safety Report 7235569-5 (Version None)
Quarter: 2011Q1

REPORT INFORMATION
  Report Type: 
  Country: None (occurrence: None)
  Receive Date: 20110120
  Receipt Date: 20110113
  Transmission Date: 20110831
  Serious: Yes (Hospitalization)
  Sender: FDA-Public Use
  Company Number: PHHO2010BR19051

PATIENT
  Sex: Female
  Weight: 60 kg

DRUGS (6)
  1. BLINDED AEB071 [Suspect]
     Indication: RENAL TRANSPLANT
     Dosage: CODE NOT BROKEN
     Route: 048
     Dates: start: 20101108
  2. BLINDED NO TREATMENT RECEIVED [Suspect]
     Indication: RENAL TRANSPLANT
     Dosage: CODE NOT BROKEN
     Route: 048
     Dates: start: 20101108
  3. BLINDED ERL 080A [Suspect]
     Indication: RENAL TRANSPLANT
     Dosage: CODE NOT BROKEN
     Route: 048
     Dates: start: 20101108
  4. PREDNISONE [Suspect]
     Indication: RENAL TRANSPLANT
  5. TACROLIMUS [Suspect]
     Indication: RENAL TRANSPLANT
     Dosage: 5.5 MG DAILY
     Route: 048
     Dates: start: 20101108
  6. NEORAL [Suspect]
     Indication: RENAL TRANSPLANT
     Dosage: 10 MG PER DAY
     Route: 048
     Dates: start: 20101108

REACTIONS (3)
  - RENAL IMPAIRMENT [None]
  - TACHYCARDIA [None]
  - URINARY TRACT INFECTION [None]
